FAERS Safety Report 7068010-6 (Version None)
Quarter: 2010Q4

REPORT INFORMATION
  Report Type: 
  Country: None (occurrence: None)
  Receive Date: 20101028
  Receipt Date: 20101021
  Transmission Date: 20110411
  Serious: Yes (Other)
  Sender: FDA-Public Use
  Company Number: US-SOLVAY-00210006432

PATIENT
  Age: 480 Month
  Sex: Female
  Weight: 46.818 kg

DRUGS (1)
  1. PROMETRIUM [Suspect]
     Indication: ATROPHIC VULVOVAGINITIS
     Dosage: DAILY DOSE: 200 MILLIGRAM(S)
     Route: 065
     Dates: start: 20100501

REACTIONS (4)
  - COELIAC DISEASE [None]
  - EATING DISORDER [None]
  - MALAISE [None]
  - WEIGHT DECREASED [None]
